FAERS Safety Report 6424410-6 (Version None)
Quarter: 2009Q4

REPORT INFORMATION
  Report Type: 
  Country: None (occurrence: None)
  Receive Date: 20091029
  Receipt Date: 20091020
  Transmission Date: 20100525
  Serious: Yes (Other)
  Sender: FDA-Public Use
  Company Number: 2009JP006423

PATIENT
  Age: 58 Year
  Sex: Male

DRUGS (9)
  1. PROGRAF [Suspect]
     Indication: BONE MARROW TRANSPLANT
  2. FLUDARABINE [Concomitant]
  3. MELPHALAN [Concomitant]
  4. METHOTREXATE [Concomitant]
  5. PREDNISOLONE [Concomitant]
  6. CYCLOSPORINE [Concomitant]
  7. MYCOPHENOLATE MOFETIL [Concomitant]
  8. GANCICLOVIR [Concomitant]
  9. FOSCARNET [Concomitant]

REACTIONS (1)
  - THROMBOTIC MICROANGIOPATHY [None]
